FAERS Safety Report 15451138 (Version 1)
Quarter: 2018Q4

REPORT INFORMATION
  Report Type: Spontaneous
  Country: FI (occurrence: FI)
  Receive Date: 20181001
  Receipt Date: 20181001
  Transmission Date: 20190204
  Serious: Yes (Other)
  Sender: FDA-Public Use
  Company Number: FI-ASTRAZENECA-2018SF24914

PATIENT
  Age: 72 Year
  Sex: Male

DRUGS (6)
  1. SIFROL [Concomitant]
     Active Substance: PRAMIPEXOLE
  2. OPAMOX [Suspect]
     Active Substance: OXAZEPAM
     Indication: PRODUCT USED FOR UNKNOWN INDICATION
     Dosage: STRENGTH: 15 MG
     Route: 048
     Dates: start: 201804, end: 2018
  3. RISPERIDONE. [Suspect]
     Active Substance: RISPERIDONE
     Indication: RESTLESSNESS
     Dosage: 0.5MG UNKNOWN
     Route: 048
     Dates: start: 20180717, end: 20180830
  4. FURESIS [Concomitant]
     Active Substance: FUROSEMIDE
  5. KETIPINOR [Suspect]
     Active Substance: QUETIAPINE FUMARATE
     Indication: RESTLESSNESS
     Route: 048
     Dates: start: 2018, end: 2018
  6. AMLODIPINE [Suspect]
     Active Substance: AMLODIPINE BESYLATE
     Indication: PRODUCT USED FOR UNKNOWN INDICATION
     Dosage: STRENGTH: 20 MG
     Route: 048
     Dates: start: 2018, end: 2018

REACTIONS (9)
  - Cerebrovascular disorder [Not Recovered/Not Resolved]
  - Somnolence [Recovered/Resolved]
  - Withdrawal syndrome [Not Recovered/Not Resolved]
  - Eating disorder symptom [Not Recovered/Not Resolved]
  - Facial asymmetry [Not Recovered/Not Resolved]
  - Fluid retention [Recovered/Resolved]
  - Gait inability [Recovered/Resolved]
  - Drug ineffective [Not Recovered/Not Resolved]
  - Dystonia [Not Recovered/Not Resolved]

NARRATIVE: CASE EVENT DATE: 2018
